FAERS Safety Report 9379518 (Version 1)
Quarter: 2013Q2

REPORT INFORMATION
  Report Type: Spontaneous
  Country: US (occurrence: None)
  Receive Date: 20130627
  Receipt Date: 20130627
  Transmission Date: 20140414
  Serious: Yes (Death)
  Sender: FDA-Public Use
  Company Number: KAD201306-000753

PATIENT
  Sex: Female

DRUGS (2)
  1. ANASTROZOLE [Suspect]
     Indication: BREAST CANCER METASTATIC
     Route: 048
  2. FULVESTRANT [Suspect]
     Indication: BREAST CANCER METASTATIC
     Dosage: INJECTION, 500 MG ON DAY 0 (LOADING DOSE),
     Route: 030

REACTIONS (1)
  - Pulmonary embolism [None]
